FAERS Safety Report 5370427-2 (Version None)
Quarter: 2007Q2

REPORT INFORMATION
  Report Type: 
  Country: None (occurrence: None)
  Receive Date: 20070625
  Receipt Date: 20070625
  Transmission Date: 20071010
  Serious: Yes (Other)
  Sender: FDA-Public Use
  Company Number: None

PATIENT
  Age: 29 Year
  Sex: Male
  Weight: 74.3899 kg

DRUGS (3)
  1. PROPECIA [Suspect]
     Indication: ALOPECIA
     Dosage: 1 TABLET/1MG 1X DAILY ORAL
     Route: 048
     Dates: start: 20070426
  2. PROPECIA [Suspect]
     Indication: ALOPECIA
     Dosage: 1 TABLET/1MG 1X DAILY ORAL
     Route: 048
     Dates: start: 20070427
  3. MINOXODIL [Concomitant]

REACTIONS (10)
  - ANXIETY [None]
  - BREAST TENDERNESS [None]
  - DIZZINESS [None]
  - EMOTIONAL DISORDER [None]
  - ERECTILE DYSFUNCTION [None]
  - FEELING ABNORMAL [None]
  - LOSS OF LIBIDO [None]
  - NAUSEA [None]
  - NIPPLE SWELLING [None]
  - PENIS DISORDER [None]
